FAERS Safety Report 5757107-6 (Version None)
Quarter: 2008Q2

REPORT INFORMATION
  Report Type: 
  Country: None (occurrence: None)
  Receive Date: 20080529
  Receipt Date: 20080519
  Transmission Date: 20081010
  Serious: Yes (Other)
  Sender: FDA-Public Use
  Company Number: 2008013297

PATIENT
  Sex: Female

DRUGS (1)
  1. NEOSPORIN [Suspect]
     Indication: SCRATCH
     Dosage: UNSPECIFIED ONCE  A DAY,TOPICAL
     Route: 061
     Dates: start: 20060101

REACTIONS (2)
  - OROPHARYNGITIS FUNGAL [None]
  - THROAT CANCER [None]
